FAERS Safety Report 5961565-1 (Version None)
Quarter: 2008Q4

REPORT INFORMATION
  Report Type: 
  Country: None (occurrence: None)
  Receive Date: 20081121
  Receipt Date: 20081114
  Transmission Date: 20090506
  Serious: No
  Sender: FDA-Public Use
  Company Number: B0545248A

PATIENT
  Age: 42 Year
  Sex: Male
  Weight: 97 kg

DRUGS (3)
  1. AVANDIA [Suspect]
     Dosage: 8MG UNKNOWN
     Route: 065
     Dates: start: 20060616, end: 20080924
  2. METFORMIN HCL [Concomitant]
     Route: 065
     Dates: start: 19990801
  3. DIAMICRON [Concomitant]
     Dosage: 90MG UNKNOWN
     Route: 065
     Dates: start: 20041101

REACTIONS (1)
  - RIB FRACTURE [None]
